FAERS Safety Report 18111544 (Version 4)
Quarter: 2021Q1

REPORT INFORMATION
  Report Type: Report from Study
  Country: US (occurrence: US)
  Receive Date: 20200805
  Receipt Date: 20210314
  Transmission Date: 20210419
  Serious: Yes (Hospitalization, Other)
  Sender: FDA-Public Use
  Company Number: US-SA-2020SA199983

PATIENT
  Age: 26 Year
  Sex: Male

DRUGS (5)
  1. ALEMTUZUMAB [Suspect]
     Active Substance: ALEMTUZUMAB
     Indication: MULTIPLE SCLEROSIS
     Dosage: 12 MG, QD
     Route: 041
     Dates: start: 20170417, end: 20170421
  2. CYCLOPHOSPHAMIDE. [Suspect]
     Active Substance: CYCLOPHOSPHAMIDE
     Indication: PNEUMONIA
  3. CYCLOPHOSPHAMIDE. [Suspect]
     Active Substance: CYCLOPHOSPHAMIDE
     Indication: SEPSIS
     Route: 065
  4. CYCLOPHOSPHAMIDE. [Suspect]
     Active Substance: CYCLOPHOSPHAMIDE
     Indication: IMMUNE THROMBOCYTOPENIA
  5. CYCLOPHOSPHAMIDE. [Suspect]
     Active Substance: CYCLOPHOSPHAMIDE
     Indication: AUTOIMMUNE HAEMOLYTIC ANAEMIA

REACTIONS (16)
  - Splenic infarction [Unknown]
  - Pneumonia [Unknown]
  - Basedow^s disease [Unknown]
  - Renal infarct [Unknown]
  - Urinary tract infection [Unknown]
  - Neutropenia [Unknown]
  - Evans syndrome [Unknown]
  - Deep vein thrombosis [Unknown]
  - Immune thrombocytopenia [Recovered/Resolved]
  - Haemoglobin decreased [Recovered/Resolved]
  - Near death experience [Unknown]
  - Escherichia bacteraemia [Unknown]
  - Pulmonary embolism [Unknown]
  - Autoimmune haemolytic anaemia [Recovered/Resolved]
  - Sepsis [Unknown]
  - Acute myocardial infarction [Unknown]

NARRATIVE: CASE EVENT DATE: 2018
